FAERS Safety Report 9735154 (Version 1)
Quarter: 2013Q4

REPORT INFORMATION
  Report Type: Spontaneous
  Country: GB (occurrence: None)
  Receive Date: 20131204
  Receipt Date: 20131204
  Transmission Date: 20140711
  Serious: Yes (Hospitalization)
  Sender: FDA-Public Use
  Company Number: 2038211

PATIENT
  Age: 59 Year
  Sex: Female

DRUGS (10)
  1. DOCETAXEL [Suspect]
     Indication: BREAST CANCER
     Dates: start: 20130823
  2. TRASTUZUMAB [Suspect]
     Indication: BREAST CANCER
     Route: 058
     Dates: start: 20130823
  3. DEXAMETHASONE [Concomitant]
  4. METOCLOPRAMIDE [Concomitant]
  5. PARACETAMOL [Concomitant]
  6. BENZYDAMINE HYDROCHLORIDE [Concomitant]
  7. NYSTATIN [Concomitant]
  8. FLUCONAZOLE [Concomitant]
  9. PIPERACILLIN SODIUM W/TAZOBACTAM SODIUM [Concomitant]
  10. AMOXICILLIN TRIHYDRATE W/CLAVULANTE POTASSIUM [Concomitant]

REACTIONS (4)
  - Cystitis [None]
  - Oral candidiasis [None]
  - Staphylococcus test positive [None]
  - Escherichia test positive [None]
